FAERS Safety Report 9735828 (Version 3)
Quarter: 2015Q3

REPORT INFORMATION
  Report Type: Spontaneous
  Country: US (occurrence: US)
  Receive Date: 20131206
  Receipt Date: 20150804
  Transmission Date: 20151125
  Serious: Yes (Hospitalization)
  Sender: FDA-Public Use
  Company Number: US-GILEAD-2009-0023859

PATIENT
  Age: 46 Year
  Sex: Female
  Weight: 45.9 kg

DRUGS (13)
  1. DARVON [Concomitant]
     Active Substance: PROPOXYPHENE HYDROCHLORIDE
  2. FENTANYL. [Concomitant]
     Active Substance: FENTANYL
  3. XANAX [Concomitant]
     Active Substance: ALPRAZOLAM
  4. REMODULIN [Concomitant]
     Active Substance: TREPROSTINIL
  5. LASIX [Concomitant]
     Active Substance: FUROSEMIDE
  6. PREDNISONE. [Concomitant]
     Active Substance: PREDNISONE
  7. LETAIRIS [Suspect]
     Active Substance: AMBRISENTAN
     Indication: PULMONARY ARTERIAL HYPERTENSION
     Route: 048
     Dates: start: 20080710
  8. REVATIO [Concomitant]
     Active Substance: SILDENAFIL CITRATE
  9. SPIRONOLACTONE. [Concomitant]
     Active Substance: SPIRONOLACTONE
  10. LACTULOSE. [Concomitant]
     Active Substance: LACTULOSE
  11. COUMADIN [Concomitant]
     Active Substance: WARFARIN SODIUM
  12. METOLAZONE. [Concomitant]
     Active Substance: METOLAZONE
  13. LEXAPRO [Concomitant]
     Active Substance: ESCITALOPRAM OXALATE

REACTIONS (1)
  - Fluid retention [Recovering/Resolving]

NARRATIVE: CASE EVENT DATE: 20090806
